FAERS Safety Report 8397567-8 (Version None)
Quarter: 2012Q2

REPORT INFORMATION
  Report Type: 
  Country: None (occurrence: None)
  Receive Date: 20120529
  Receipt Date: 20120529
  Transmission Date: 20120825
  Serious: Yes (Life-Threatening, Hospitalization)
  Sender: FDA-Public Use
  Company Number: None

PATIENT
  Age: 70 Year
  Sex: Female
  Weight: 84.8226 kg

DRUGS (1)
  1. LEVOFLOXACIN [Suspect]
     Indication: ACUTE SINUSITIS
     Dosage: 1 TABLET ONCE DAILY PO
     Route: 048
     Dates: start: 20120524, end: 20120528

REACTIONS (16)
  - URTICARIA [None]
  - DIZZINESS [None]
  - VOMITING [None]
  - FATIGUE [None]
  - HIV TEST POSITIVE [None]
  - DIARRHOEA [None]
  - BURNING SENSATION [None]
  - DYSPNOEA [None]
  - HYPOAESTHESIA [None]
  - MUSCULAR WEAKNESS [None]
  - HEADACHE [None]
  - NAUSEA [None]
  - EYE IRRITATION [None]
  - THROAT TIGHTNESS [None]
  - PYREXIA [None]
  - DECREASED APPETITE [None]
